FAERS Safety Report 25050442 (Version 2)
Quarter: 2025Q1

REPORT INFORMATION
  Report Type: Spontaneous
  Country: FR (occurrence: FR)
  Receive Date: 20250307
  Receipt Date: 20250318
  Transmission Date: 20250408
  Serious: Yes (Hospitalization, Other)
  Sender: ALEXION PHARMACEUTICALS
  Company Number: FR-ASTRAZENECA-202502EEA027471FR

PATIENT
  Age: 72 Year
  Weight: 93 kg

DRUGS (12)
  1. LYNPARZA [Suspect]
     Active Substance: OLAPARIB
     Indication: Prostate cancer
     Dosage: 300 MILLIGRAM, BID
  2. DOVATO [Concomitant]
     Active Substance: DOLUTEGRAVIR SODIUM\LAMIVUDINE
     Indication: HIV infection
  3. BISOPROLOL [Concomitant]
     Active Substance: BISOPROLOL
     Indication: Myocardial ischaemia
  4. HYDROCHLOROTHIAZIDE\IRBESARTAN [Concomitant]
     Active Substance: HYDROCHLOROTHIAZIDE\IRBESARTAN
     Indication: Hypertension
  5. Decapeptyl [Concomitant]
     Indication: Prostate cancer
  6. ASPIRIN [Concomitant]
     Active Substance: ASPIRIN
     Indication: Myocardial ischaemia
  7. TOUJEO [Concomitant]
     Active Substance: INSULIN GLARGINE
     Indication: Diabetes mellitus
  8. TOVIAZ [Concomitant]
     Active Substance: FESOTERODINE FUMARATE
     Indication: Dysuria
  9. VICTOZA [Concomitant]
     Active Substance: LIRAGLUTIDE
     Indication: Diabetes mellitus
  10. CRESTOR [Concomitant]
     Active Substance: ROSUVASTATIN CALCIUM
     Indication: Dyslipidaemia
     Route: 065
  11. OXAZEPAM [Concomitant]
     Active Substance: OXAZEPAM
     Indication: Anxiety
     Dosage: 50 MILLIGRAM,
  12. IMOVANE [Concomitant]
     Active Substance: ZOPICLONE
     Indication: Anxiety

REACTIONS (4)
  - Cardiac failure [Recovering/Resolving]
  - Dyspnoea exertional [Recovering/Resolving]
  - N-terminal prohormone brain natriuretic peptide increased [Recovering/Resolving]
  - Hypokalaemia [Recovering/Resolving]
